FAERS Safety Report 8270813-7 (Version None)
Quarter: 2012Q2

REPORT INFORMATION
  Report Type: 
  Country: None (occurrence: None)
  Receive Date: 20120410
  Receipt Date: 20120405
  Transmission Date: 20120825
  Serious: Yes (Other)
  Sender: FDA-Public Use
  Company Number: US-PFIZER INC-2012086915

PATIENT
  Sex: Male
  Weight: 126 kg

DRUGS (11)
  1. CHANTIX [Suspect]
     Dosage: UNK
     Route: 048
     Dates: end: 20120301
  2. SPIRIVA [Suspect]
     Indication: CHRONIC OBSTRUCTIVE PULMONARY DISEASE
     Dosage: UNK
     Route: 048
  3. SPIRIVA [Suspect]
     Indication: EMPHYSEMA
  4. OXYCODONE [Concomitant]
     Indication: PAIN
     Dosage: 5 MG, 4X/DAY
  5. LYRICA [Concomitant]
     Indication: DIABETIC NEUROPATHY
     Dosage: UNK
  6. MORPHINE [Concomitant]
     Indication: PAIN
     Dosage: 30 MG, UNK
     Route: 048
  7. KLONOPIN [Concomitant]
     Indication: DEPRESSION
     Dosage: UNK
  8. RISPERIDONE [Concomitant]
     Indication: DEPRESSION
     Dosage: UNK
  9. CHANTIX [Suspect]
     Indication: SMOKING CESSATION THERAPY
     Dosage: 0.5 MG, 1X/DAY
     Route: 048
     Dates: start: 20111101
  10. LAMICTAL [Concomitant]
     Indication: DEPRESSION
     Dosage: UNK
  11. CYMBALTA [Concomitant]
     Indication: DEPRESSION
     Dosage: UNK

REACTIONS (11)
  - ABNORMAL DREAMS [None]
  - GASTROOESOPHAGEAL REFLUX DISEASE [None]
  - MYOCARDIAL INFARCTION [None]
  - CEREBROVASCULAR ACCIDENT [None]
  - FLUID RETENTION [None]
  - ANXIETY [None]
  - BLOOD GLUCOSE INCREASED [None]
  - DEPRESSION [None]
  - MENTAL DISORDER [None]
  - OEDEMA PERIPHERAL [None]
  - DRUG INEFFECTIVE [None]
